FAERS Safety Report 8395906-5 (Version None)
Quarter: 2012Q2

REPORT INFORMATION
  Report Type: 
  Country: None (occurrence: None)
  Receive Date: 20120530
  Receipt Date: 20120523
  Transmission Date: 20120825
  Serious: Yes (Hospitalization)
  Sender: FDA-Public Use
  Company Number: JP-BRISTOL-MYERS SQUIBB COMPANY-16620528

PATIENT
  Age: 68 Year
  Sex: Female

DRUGS (2)
  1. PREDNISOLONE [Concomitant]
     Route: 048
  2. ORENCIA [Suspect]
     Indication: MUSCULOSKELETAL PAIN
     Route: 041

REACTIONS (1)
  - INTERSTITIAL LUNG DISEASE [None]
